FAERS Safety Report 22597573 (Version 1)
Quarter: 2023Q2

REPORT INFORMATION
  Report Type: Other
  Country: US (occurrence: None)
  Receive Date: 20230614
  Receipt Date: 20230614
  Transmission Date: 20230721
  Serious: Yes (Other)
  Sender: FDA-Public Use
  Company Number: US-ROCHE-3364772

PATIENT
  Age: 59 Year
  Sex: Male

DRUGS (10)
  1. OCREVUS [Suspect]
     Active Substance: OCRELIZUMAB
     Indication: Relapsing multiple sclerosis
     Dosage: DOT: 26/APR/2023, 19/OCT/2022, 03/FEB/2022, 22/JUL/2021
     Route: 042
  2. OCREVUS [Suspect]
     Active Substance: OCRELIZUMAB
     Route: 042
  3. VITAMINS [Concomitant]
     Active Substance: VITAMINS
     Route: 048
  4. VITAMIN B [Concomitant]
     Active Substance: VITAMIN B
     Route: 048
  5. COPAXONE [Concomitant]
     Active Substance: GLATIRAMER ACETATE
  6. ATORVASTATIN [Concomitant]
     Active Substance: ATORVASTATIN
  7. FENOFIBRATE [Concomitant]
     Active Substance: FENOFIBRATE
  8. METOPROLOL [Concomitant]
     Active Substance: METOPROLOL
  9. OMEPRAZOLE [Concomitant]
     Active Substance: OMEPRAZOLE
  10. SILDENAFIL [Concomitant]
     Active Substance: SILDENAFIL

REACTIONS (2)
  - Urinary tract infection [Unknown]
  - Inappropriate schedule of product administration [Unknown]

NARRATIVE: CASE EVENT DATE: 20230419
